FAERS Safety Report 12155565 (Version 1)
Quarter: 2016Q1

REPORT INFORMATION
  Report Type: Spontaneous
  Country: US (occurrence: US)
  Receive Date: 20160307
  Receipt Date: 20160307
  Transmission Date: 20160526
  Serious: Yes (Other)
  Sender: FDA-Public Use
  Company Number: US-CELGENEUS-USA-2016030386

PATIENT
  Sex: Male

DRUGS (1)
  1. OTEZLA [Suspect]
     Active Substance: APREMILAST
     Indication: LYMPHADENECTOMY
     Dosage: 60 MILLIGRAM
     Route: 048

REACTIONS (2)
  - Arthropathy [Unknown]
  - Respiratory disorder [Unknown]
